FAERS Safety Report 12081818 (Version 1)
Quarter: 2016Q1

REPORT INFORMATION
  Report Type: Spontaneous
  Country: US (occurrence: US)
  Receive Date: 20160216
  Receipt Date: 20160216
  Transmission Date: 20160526
  Serious: Yes (Death, Life-Threatening, Hospitalization)
  Sender: FDA-Public Use
  Company Number: US-BANPHARM-20164656

PATIENT
  Age: 25 Year
  Sex: Female

DRUGS (2)
  1. LOPERAMIDE UNKNOWN PRODUCT [Suspect]
     Active Substance: LOPERAMIDE
  2. LOPERAMIDE UNKNOWN PRODUCT [Suspect]
     Active Substance: LOPERAMIDE

REACTIONS (9)
  - Cardio-respiratory arrest [Fatal]
  - Long QT syndrome [Recovered/Resolved]
  - Acute respiratory failure [Recovered/Resolved]
  - Ventricular tachycardia [Recovered/Resolved]
  - Intentional product misuse [Unknown]
  - Bradycardia [Recovered/Resolved]
  - Hypotension [Recovered/Resolved]
  - Abdominal discomfort [Unknown]
  - Syncope [Recovered/Resolved]
